FAERS Safety Report 7142241-9 (Version None)
Quarter: 2010Q4

REPORT INFORMATION
  Report Type: 
  Country: None (occurrence: None)
  Receive Date: 20101207
  Receipt Date: 20101125
  Transmission Date: 20110411
  Serious: Yes (Death, Hospitalization)
  Sender: FDA-Public Use
  Company Number: JP-MERCK-1011USA01135

PATIENT
  Age: 81 Year
  Sex: Female

DRUGS (8)
  1. JANUVIA [Suspect]
     Indication: BLOOD GLUCOSE ABNORMAL
     Route: 048
     Dates: start: 20100522, end: 20100601
  2. GLUFAST [Concomitant]
     Indication: BLOOD GLUCOSE ABNORMAL
     Route: 048
     Dates: start: 20100501
  3. AMLODIPINE BESYLATE [Concomitant]
     Indication: BLOOD PRESSURE ABNORMAL
     Route: 048
     Dates: start: 20100101
  4. TERNELIN [Concomitant]
     Indication: PAIN
     Route: 048
     Dates: start: 20100101
  5. HYPEN [Concomitant]
     Indication: PAIN
     Route: 048
     Dates: start: 20100101
  6. GASMOTIN [Concomitant]
     Indication: BOWEL MOVEMENT IRREGULARITY
     Route: 048
     Dates: start: 20100101
  7. MAGMITT [Concomitant]
     Indication: BOWEL MOVEMENT IRREGULARITY
     Route: 048
     Dates: start: 20100101
  8. OMEPRAZON [Concomitant]
     Indication: GASTRIC ULCER
     Route: 048
     Dates: start: 20100101

REACTIONS (2)
  - ATYPICAL MYCOBACTERIAL INFECTION [None]
  - RESPIRATORY FAILURE [None]
